FAERS Safety Report 24630570 (Version 1)
Quarter: 2024Q4

REPORT INFORMATION
  Report Type: Spontaneous
  Country: US (occurrence: None)
  Receive Date: 20241116
  Receipt Date: 20241116
  Transmission Date: 20250114
  Serious: Yes (Hospitalization)
  Sender: Public
  Company Number: None

PATIENT
  Age: 47 Year
  Sex: Male
  Weight: 107.7 kg

DRUGS (2)
  1. IFOSFAMIDE [Suspect]
     Active Substance: IFOSFAMIDE
     Dosage: FREQUENCY : TOTAL;?
     Dates: start: 20220112, end: 20221130
  2. PACLITAXEL [Suspect]
     Active Substance: PACLITAXEL
     Dosage: FREQUENCY : TOTAL;?
     Dates: start: 20220112, end: 20220128

REACTIONS (4)
  - Chills [None]
  - Pyrexia [None]
  - Sinus tachycardia [None]
  - Full blood count decreased [None]

NARRATIVE: CASE EVENT DATE: 20220212
